FAERS Safety Report 12309233 (Version 1)
Quarter: 2016Q2

REPORT INFORMATION
  Report Type: Spontaneous
  Country: US (occurrence: US)
  Receive Date: 20160427
  Receipt Date: 20160427
  Transmission Date: 20160815
  Serious: Yes (Other)
  Sender: FDA-Public Use
  Company Number: US-WEST-WARD PHARMACEUTICALS CORP.-US-H14001-16-00416

PATIENT
  Sex: Female

DRUGS (1)
  1. AMOXICILLIN. [Suspect]
     Active Substance: AMOXICILLIN
     Indication: PRODUCT USED FOR UNKNOWN INDICATION
     Route: 065
     Dates: start: 20160306, end: 201603

REACTIONS (5)
  - Pharyngeal oedema [Unknown]
  - Throat irritation [Unknown]
  - Hypersensitivity [Unknown]
  - Swollen tongue [Unknown]
  - Rash [Unknown]

NARRATIVE: CASE EVENT DATE: 201603
